FAERS Safety Report 20631714 (Version 1)
Quarter: 2022Q1

REPORT INFORMATION
  Report Type: Spontaneous
  Country: US (occurrence: None)
  Receive Date: 20220324
  Receipt Date: 20220324
  Transmission Date: 20220423
  Serious: No
  Sender: FDA-Public Use
  Company Number: None

PATIENT
  Sex: Female

DRUGS (1)
  1. STELARA [Suspect]
     Active Substance: USTEKINUMAB
     Indication: Psoriasis
     Dosage: FREQUENCY= 45MG SUB-Q AT WEEK 0, WEEK 4, THEN EVERY 12 WEEKS THEREAFTER.?
     Route: 058
     Dates: start: 202203

REACTIONS (1)
  - Drug ineffective [None]
